FAERS Safety Report 25312522 (Version 1)
Quarter: 2025Q2

REPORT INFORMATION
  Report Type: Spontaneous
  Country: ES (occurrence: ES)
  Receive Date: 20250514
  Receipt Date: 20250514
  Transmission Date: 20250717
  Serious: Yes (Life-Threatening, Hospitalization, Other)
  Sender: CHEPLAPHARM
  Company Number: None

PATIENT
  Age: 69 Year
  Sex: Male

DRUGS (2)
  1. CAPECITABINE [Suspect]
     Active Substance: CAPECITABINE
     Indication: Colorectal adenocarcinoma
     Dosage: 120 TABLETS;  XELOX 4 CYCLES?DAILY DOSE: 3.5 GRAM
     Route: 048
     Dates: start: 20240917, end: 20241006
  2. OXALIPLATIN [Suspect]
     Active Substance: OXALIPLATIN
     Indication: Colorectal adenocarcinoma
     Route: 042
     Dates: start: 20240917, end: 20241001

REACTIONS (21)
  - Colitis [Recovered/Resolved]
  - Clostridium difficile colitis [Recovered/Resolved]
  - Septic shock [Recovered/Resolved]
  - Hydronephrosis [Unknown]
  - Polyneuropathy [Unknown]
  - Chronic kidney disease [Unknown]
  - Neutropenia [Unknown]
  - Hypokalaemia [Unknown]
  - Mucosal inflammation [Unknown]
  - Pneumatosis [Unknown]
  - Urinary tract infection [Unknown]
  - Dysphagia [Unknown]
  - Anal incontinence [Unknown]
  - Malnutrition [Unknown]
  - Decubitus ulcer [Unknown]
  - Normochromic normocytic anaemia [Unknown]
  - Hiccups [Unknown]
  - Metabolic acidosis [Unknown]
  - Hyperphosphataemia [Unknown]
  - Hyponatraemia [Unknown]
  - Hypocalcaemia [Unknown]

NARRATIVE: CASE EVENT DATE: 20241007
